FAERS Safety Report 6595346-5 (Version None)
Quarter: 2010Q1

REPORT INFORMATION
  Report Type: 
  Country: None (occurrence: None)
  Receive Date: 20100223
  Receipt Date: 20100210
  Transmission Date: 20100710
  Serious: Yes (Hospitalization)
  Sender: FDA-Public Use
  Company Number: US-BIOGENIDEC-2010BI001325

PATIENT
  Age: 66 Year
  Sex: Male
  Weight: 99 kg

DRUGS (3)
  1. TYSABRI [Suspect]
     Indication: MULTIPLE SCLEROSIS
     Route: 042
     Dates: start: 20081231
  2. NUVIGIL [Concomitant]
     Indication: SOMNOLENCE
  3. ANTI-HYPERTENSIVE [Concomitant]
     Indication: HYPERTENSION

REACTIONS (5)
  - HYPERSOMNIA [None]
  - HYPOTENSION [None]
  - LISTLESS [None]
  - NEPHROLITHIASIS [None]
  - THYROID DISORDER [None]
